FAERS Safety Report 5182388-X (Version None)
Quarter: 2006Q4

REPORT INFORMATION
  Report Type: 
  Country: None (occurrence: None)
  Receive Date: 20061220
  Receipt Date: 20060821
  Transmission Date: 20070319
  Serious: No
  Sender: FDA-Public Use
  Company Number: US-GLAXOSMITHKLINE-A0617760A

PATIENT
  Age: 29 Year
  Sex: Male

DRUGS (5)
  1. COMMIT [Suspect]
     Route: 048
  2. NICODERM CQ [Suspect]
     Dosage: 21MG PER DAY
     Route: 062
  3. NICORETTE [Suspect]
     Dosage: 4MG UNKNOWN
     Route: 048
  4. EQUATE 21MG NICOTINE TRANSDERMAL PATCH [Suspect]
     Dosage: 21MG PER DAY
     Route: 062
  5. NICODERM CQ [Suspect]
     Dosage: 21MG PER DAY
     Route: 062

REACTIONS (3)
  - APPLICATION SITE PERSPIRATION [None]
  - DRUG INEFFECTIVE [None]
  - DRUG WITHDRAWAL SYNDROME [None]
